FAERS Safety Report 19441646 (Version 1)
Quarter: 2021Q2

REPORT INFORMATION
  Report Type: Spontaneous
  Country: US (occurrence: US)
  Receive Date: 20210621
  Receipt Date: 20210621
  Transmission Date: 20210717
  Serious: Yes (Other)
  Sender: FDA-Public Use
  Company Number: US-DRREDDYS-LIT/USA/21/0136593

PATIENT
  Age: 19 Year
  Sex: Female

DRUGS (3)
  1. LORAZEPAM INJECTION USP, 2 MG/ML AND 4 MG/ML [Suspect]
     Active Substance: LORAZEPAM
     Indication: SEIZURE
  2. LORAZEPAM INJECTION USP, 2 MG/ML AND 4 MG/ML [Suspect]
     Active Substance: LORAZEPAM
     Indication: AGITATION
  3. BUPROPION. [Suspect]
     Active Substance: BUPROPION
     Indication: SUICIDE ATTEMPT
     Dosage: 53 SUSTAINED?RELEASE TABLETS

REACTIONS (5)
  - Supraventricular tachycardia [Unknown]
  - Sinus tachycardia [Unknown]
  - Serotonin syndrome [Unknown]
  - Generalised tonic-clonic seizure [Recovered/Resolved]
  - Hyperthermia [Recovered/Resolved]
